FAERS Safety Report 14635181 (Version 1)
Quarter: 2018Q1

REPORT INFORMATION
  Report Type: Spontaneous
  Country: US (occurrence: US)
  Receive Date: 20180314
  Receipt Date: 20180314
  Transmission Date: 20180509
  Serious: No
  Sender: FDA-Public Use
  Company Number: US-GLAXOSMITHKLINE-US2018038024

PATIENT
  Age: 69 Year
  Sex: Female

DRUGS (1)
  1. TARGET NTS 14MG TRANSDERMAL PATCH [Suspect]
     Active Substance: NICOTINE
     Indication: DRUG WITHDRAWAL MAINTENANCE THERAPY
     Dosage: 14 MG, UNK
     Dates: start: 20180226

REACTIONS (2)
  - Dizziness [Recovering/Resolving]
  - Application site pruritus [Unknown]

NARRATIVE: CASE EVENT DATE: 20180301
